FAERS Safety Report 21754818 (Version 1)
Quarter: 2022Q4

REPORT INFORMATION
  Report Type: Spontaneous
  Country: ES (occurrence: ES)
  Receive Date: 20221220
  Receipt Date: 20221220
  Transmission Date: 20230113
  Serious: Yes (Hospitalization)
  Sender: FDA-Public Use
  Company Number: ES-SUNOVION-2022SUN003433AA

PATIENT

DRUGS (1)
  1. LURASIDONE HYDROCHLORIDE [Suspect]
     Active Substance: LURASIDONE HYDROCHLORIDE
     Indication: Obsessive-compulsive disorder
     Dosage: 111 MG
     Route: 048

REACTIONS (2)
  - Manic symptom [Recovering/Resolving]
  - Off label use [Unknown]
